FAERS Safety Report 5530119-3 (Version None)
Quarter: 2007Q4

REPORT INFORMATION
  Report Type: 
  Country: None (occurrence: None)
  Receive Date: 20071130
  Receipt Date: 20071123
  Transmission Date: 20080405
  Serious: Yes (Hospitalization, Other)
  Sender: FDA-Public Use
  Company Number: PHBS2007BR19607

PATIENT
  Age: 81 Year
  Sex: Female
  Weight: 78 kg

DRUGS (6)
  1. TRILEPTAL [Suspect]
     Indication: TINNITUS
     Dosage: 300 MG, QD
     Route: 048
     Dates: start: 20040101
  2. ATENOLOL [Concomitant]
     Indication: HYPERTENSION
     Dosage: 50 MG, QD
     Route: 048
     Dates: start: 20020101
  3. ASPIRIN [Concomitant]
     Indication: ANTICOAGULANT THERAPY
     Dosage: UNK, QD
     Route: 048
     Dates: start: 20070701
  4. TRIMETAZIDINE [Concomitant]
     Indication: ANTICOAGULANT THERAPY
     Dosage: 20 MG, TID
     Route: 048
     Dates: start: 20070701
  5. MICARDIS [Concomitant]
     Indication: ANTICOAGULANT THERAPY
     Dosage: 1 TABLET, QD
     Route: 048
  6. ANTIBIOTICS [Concomitant]
     Indication: TOOTH EXTRACTION

REACTIONS (9)
  - ANGLE CLOSURE GLAUCOMA [None]
  - CATARACT OPERATION [None]
  - ENDODONTIC PROCEDURE [None]
  - HYPERTENSION [None]
  - LOCAL SWELLING [None]
  - LYMPHATIC DISORDER [None]
  - OEDEMA PERIPHERAL [None]
  - PAIN [None]
  - TOOTH EXTRACTION [None]
